FAERS Safety Report 9510432 (Version 3)
Quarter: 2013Q4

REPORT INFORMATION
  Report Type: Spontaneous
  Country: JP (occurrence: JP)
  Receive Date: 20130909
  Receipt Date: 20131008
  Transmission Date: 20140711
  Serious: Yes (Hospitalization, Other)
  Sender: FDA-Public Use
  Company Number: JP-009507513-1309JPN002713

PATIENT
  Age: 61 Year
  Sex: Male
  Weight: 78 kg

DRUGS (3)
  1. JANUVIA TABLETS 50MG [Suspect]
     Indication: TYPE 2 DIABETES MELLITUS
     Dosage: 50 MG, 1 DAY
     Route: 048
     Dates: start: 20120427, end: 20130822
  2. DIOVAN [Concomitant]
     Dosage: 80 MG, 1 DAY
     Route: 048
     Dates: start: 201304
  3. AIMIX [Concomitant]
     Indication: HYPERTENSION
     Dosage: 1 DF, QD
     Route: 048
     Dates: start: 20130115

REACTIONS (6)
  - Large intestine operation [Unknown]
  - Intestinal obstruction [Recovered/Resolved]
  - Gastrointestinal tube insertion [Unknown]
  - Decreased appetite [Unknown]
  - Abdominal distension [Unknown]
  - Diarrhoea [Unknown]
